FAERS Safety Report 8544380-4 (Version None)
Quarter: 2012Q3

REPORT INFORMATION
  Report Type: 
  Country: None (occurrence: None)
  Receive Date: 20120717
  Receipt Date: 20120705
  Transmission Date: 20120928
  Serious: Yes (Hospitalization, Other)
  Sender: FDA-Public Use
  Company Number: AUR-APL-2012-02524

PATIENT
  Sex: Female

DRUGS (7)
  1. EFFEXOR [Suspect]
     Indication: DEPRESSION
     Dosage: 37.5 MG (37.5 MG, 1 IN 1 D), ORAL
     Route: 048
     Dates: end: 20120101
  2. TOPAMAX [Suspect]
     Indication: CONVULSION
     Dosage: UNKNOWN
     Dates: start: 20070101
  3. CALCIUM CARBONATE [Concomitant]
  4. VENLAFAXINE HCL [Suspect]
     Indication: PRODUCT USED FOR UNKNOWN INDICATION
     Dosage: UNKNOWN
  5. MULTI-VITAMINS [Concomitant]
  6. LISINOPRIL [Suspect]
     Indication: HYPERTENSION
     Dosage: UNKNOWN
  7. EFFEXOR XR [Suspect]
     Indication: DEPRESSION
     Dosage: 75 MG (75 MG 1 IN 1 D), ORAL
     Route: 048
     Dates: start: 20120301, end: 20120101

REACTIONS (4)
  - GRAND MAL CONVULSION [None]
  - PETIT MAL EPILEPSY [None]
  - DEPRESSION [None]
  - HOSPITALISATION [None]
